FAERS Safety Report 4675242-0 (Version None)
Quarter: 2005Q2

REPORT INFORMATION
  Report Type: 
  Country: None (occurrence: None)
  Receive Date: 20050527
  Receipt Date: 20050520
  Transmission Date: 20051028
  Serious: Yes (Other)
  Sender: FDA-Public Use
  Company Number: PHEH2005US05800

PATIENT
  Age: 55 Year
  Sex: Female
  Weight: 54 kg

DRUGS (5)
  1. ZOMETA [Suspect]
     Indication: MULTIPLE MYELOMA
     Dosage: 4 MG EVERY 4 WEEKS
     Dates: start: 20020101, end: 20050420
  2. STEROIDS NOS [Concomitant]
  3. THALIDOMIDE [Concomitant]
  4. VELCADE [Concomitant]
  5. VINCRISTINE + ADRIAMYCIN + DEXAMETHASONE [Concomitant]

REACTIONS (2)
  - ASEPTIC NECROSIS BONE [None]
  - DENTAL CARE [None]
